FAERS Safety Report 5511361-4 (Version None)
Quarter: 2007Q4

REPORT INFORMATION
  Report Type: 
  Country: None (occurrence: None)
  Receive Date: 20071109
  Receipt Date: 20070918
  Transmission Date: 20080405
  Serious: No
  Sender: FDA-Public Use
  Company Number: A0682703A

PATIENT
  Age: 5 Year
  Sex: Male

DRUGS (1)
  1. ALTABAX [Suspect]
     Indication: ABSCESS
     Dosage: 1APP TWICE PER DAY
     Route: 061
     Dates: start: 20070906, end: 20070909

REACTIONS (3)
  - RASH [None]
  - RASH PRURITIC [None]
  - SKIN IRRITATION [None]
